FAERS Safety Report 11319300 (Version 1)
Quarter: 2015Q3

REPORT INFORMATION
  Report Type: Spontaneous
  Country: US (occurrence: None)
  Receive Date: 20150727
  Receipt Date: 20150727
  Transmission Date: 20151125
  Serious: Yes (Hospitalization)
  Sender: FDA-Public Use
  Company Number: 15AE032

PATIENT
  Sex: Female

DRUGS (1)
  1. SEVERE CONGESTION RELIEF MAXIMUM STRENGTH SINUS [Suspect]
     Active Substance: ACETAMINOPHEN\GUAIFENESIN\PHENYLEPHRINE HYDROCHLORIDE
     Indication: COUGH
     Dates: start: 20150624

REACTIONS (3)
  - Dizziness [None]
  - Blood sodium decreased [None]
  - Nausea [None]

NARRATIVE: CASE EVENT DATE: 20150624
